FAERS Safety Report 9228921 (Version 1)
Quarter: 2013Q2

REPORT INFORMATION
  Report Type: Spontaneous
  Country: GB (occurrence: GB)
  Receive Date: 20130412
  Receipt Date: 20130412
  Transmission Date: 20140414
  Serious: Yes (Other)
  Sender: FDA-Public Use
  Company Number: PHHY2013GB034325

PATIENT
  Age: 79 Year
  Sex: Female
  Weight: 50.9 kg

DRUGS (13)
  1. LAMOTRIGINE [Suspect]
     Indication: PETIT MAL EPILEPSY
     Dosage: 25 MG
     Route: 048
     Dates: start: 20130326, end: 20130328
  2. ALENDRONIC ACID [Concomitant]
  3. CALCICHEW D3 [Concomitant]
  4. LETROZOLE [Concomitant]
  5. MIRTAZAPINE [Concomitant]
  6. PROPRANOLOL [Concomitant]
  7. NYSTAN [Concomitant]
  8. PARACETAMOL [Concomitant]
  9. DALTEPARIN [Concomitant]
  10. GENTAMICIN [Concomitant]
  11. CIPROFLOXACIN [Concomitant]
  12. MAALOX [Concomitant]
  13. SANDO K [Concomitant]

REACTIONS (2)
  - Lip ulceration [Not Recovered/Not Resolved]
  - Mouth ulceration [Not Recovered/Not Resolved]
